FAERS Safety Report 8367766-X (Version None)
Quarter: 2012Q2

REPORT INFORMATION
  Report Type: 
  Country: None (occurrence: None)
  Receive Date: 20120517
  Receipt Date: 20120511
  Transmission Date: 20120825
  Serious: Yes (Hospitalization)
  Sender: FDA-Public Use
  Company Number: US-BAYER-2012-048034

PATIENT
  Age: 34 Year
  Sex: Female
  Weight: 118.37 kg

DRUGS (3)
  1. VITAMIN TAB [Concomitant]
     Dosage: UNK
     Dates: start: 20090222
  2. HYDROCHLOROTHIAZIDE [Concomitant]
     Dosage: 25 MG, UNK
     Dates: start: 20071005
  3. YAZ [Suspect]
     Dosage: UNK

REACTIONS (1)
  - DEEP VEIN THROMBOSIS [None]
